FAERS Safety Report 21433445 (Version 1)
Quarter: 2022Q4

REPORT INFORMATION
  Report Type: Spontaneous
  Country: US (occurrence: None)
  Receive Date: 20221010
  Receipt Date: 20221010
  Transmission Date: 20230112
  Serious: No
  Sender: FDA-Public Use
  Company Number: US-ROCHE-3092383

PATIENT
  Sex: Female

DRUGS (1)
  1. ZELBORAF [Suspect]
     Active Substance: VEMURAFENIB
     Indication: Product used for unknown indication
     Route: 048
     Dates: start: 20220415, end: 20220423

REACTIONS (5)
  - Rash vesicular [Unknown]
  - Fatigue [Unknown]
  - Pyrexia [Unknown]
  - Pruritus [Recovered/Resolved]
  - Thermal burn [Recovered/Resolved]
